FAERS Safety Report 15891323 (Version 1)
Quarter: 2019Q1

REPORT INFORMATION
  Report Type: Report from Study
  Country: US (occurrence: US)
  Receive Date: 20190130
  Receipt Date: 20190130
  Transmission Date: 20190417
  Serious: Yes (Other)
  Sender: FDA-Public Use
  Company Number: US-009507513-1812USA002480

PATIENT
  Sex: Female
  Weight: 101.59 kg

DRUGS (14)
  1. COMPAZINE (PROCHLORPERAZINE MALEATE) [Concomitant]
     Indication: NAUSEA
     Dosage: 10 MILLIGRAM, Q6H OR PRN
     Route: 048
  2. SYNTHROID [Concomitant]
     Active Substance: LEVOTHYROXINE SODIUM
     Indication: HYPOTHYROIDISM
     Dosage: TAKE 1 TABLET DAILY
     Route: 048
  3. LIDOCAINE (+) PRILOCAINE [Concomitant]
     Dosage: 1 TOPICAL APLICATION AS DIRECTED, SMALL AMOUNT TO PORT SITE 30 MINUTES PRIOR TO USE
     Route: 061
  4. FERROUS SULFATE. [Concomitant]
     Active Substance: FERROUS SULFATE
     Dosage: 1 TABLET, BID
     Route: 048
  5. PROAIR HFA [Concomitant]
     Active Substance: ALBUTEROL SULFATE
     Dosage: TAKE 2 INHALATIONS AS DIRECTED, FORMULATION: AEROSOL WITH ADAPTER
     Route: 055
  6. PULMICORT TURBUHALER [Concomitant]
     Active Substance: BUDESONIDE
     Dosage: STRENGTH: 0.25 MG/2ML FORMULATION: AMPUL FOR NEBULIZATION, TAKE 1 AMPUL INHALATION, BID
  7. ACETAMINOPHEN (+) HYDROCODONE BITARTRATE [Concomitant]
     Active Substance: ACETAMINOPHEN\HYDROCODONE BITARTRATE
     Indication: PAIN
     Dosage: STRENGTH: 5/325 MG, Q6H OR PRN
     Route: 048
  8. SLEEP (DIPHENHYDRAMINE HYDROCHLORIDE) [Concomitant]
     Dosage: UNK
     Route: 048
  9. DOCETAXEL (+) GEMCITABINE [Concomitant]
     Indication: CHEMOTHERAPY
     Dosage: UNK
     Dates: start: 20180920
  10. KEYTRUDA [Suspect]
     Active Substance: PEMBROLIZUMAB
     Indication: METASTATIC UTERINE CANCER
     Dosage: 200 MG IV
     Route: 042
     Dates: start: 20180426, end: 20180830
  11. DEXAMETHASONE. [Concomitant]
     Active Substance: DEXAMETHASONE
     Indication: ADVERSE EVENT
     Dosage: 4 MILLIGRAM, BID. THE DAY BEFORE EACH CHEMOTHERAPY AND FOR TWO DAYS AFTER.
     Route: 048
  12. GABAPENTIN. [Concomitant]
     Active Substance: GABAPENTIN
     Indication: NEUROPATHY PERIPHERAL
     Dosage: TAKE 1 CAP IN THE AM AND TWO IN THE PM FOR ONE WEEK, THEN TAKE TWO CAPS BID
     Route: 048
  13. LOMOTIL (ATROPINE SULFATE (+) DIPHENOXYLATE HYDROCHLORIDE) [Concomitant]
     Indication: DIARRHOEA
     Dosage: STRENGTH: 2.5-0,025 MG, 1 TABLET EVERY SIX HOURS AS NEEDED
     Route: 048
  14. PANTOPRAZOLE SODIUM. [Concomitant]
     Active Substance: PANTOPRAZOLE SODIUM
     Dosage: 1 TABLET, DAILY
     Route: 048

REACTIONS (8)
  - Neuropathy peripheral [Not Recovered/Not Resolved]
  - Mouth ulceration [Recovered/Resolved]
  - Rash [Recovered/Resolved]
  - Fatigue [Recovering/Resolving]
  - Myalgia [Not Recovered/Not Resolved]
  - Malignant neoplasm progression [Not Recovered/Not Resolved]
  - Oedema peripheral [Not Recovered/Not Resolved]
  - Product use in unapproved indication [Unknown]

NARRATIVE: CASE EVENT DATE: 2018
